FAERS Safety Report 17855941 (Version 1)
Quarter: 2020Q2

REPORT INFORMATION
  Report Type: Spontaneous
  Country: US (occurrence: US)
  Receive Date: 20200603
  Receipt Date: 20200603
  Transmission Date: 20200714
  Serious: Yes (Death, Other)
  Sender: FDA-Public Use
  Company Number: US-RADIUS HEALTH INC.-2020US001935

PATIENT
  Age: 88 Year
  Sex: Female

DRUGS (1)
  1. TYMLOS [Suspect]
     Active Substance: ABALOPARATIDE
     Indication: OSTEOPOROSIS POSTMENOPAUSAL
     Dosage: 80MCG/QD
     Route: 058

REACTIONS (5)
  - Fall [Unknown]
  - Urinary tract infection [Unknown]
  - Death [Fatal]
  - Spinal fracture [Unknown]
  - Dysphagia [Unknown]

NARRATIVE: CASE EVENT DATE: 20191226
